FAERS Safety Report 6182283-3 (Version None)
Quarter: 2009Q2

REPORT INFORMATION
  Report Type: 
  Country: None (occurrence: None)
  Receive Date: 20090505
  Receipt Date: 20090505
  Transmission Date: 20091009
  Serious: Yes (Other)
  Sender: FDA-Public Use
  Company Number: None

PATIENT
  Sex: Female
  Weight: 69.8539 kg

DRUGS (1)
  1. ACTONEL [Suspect]
     Indication: OSTEOPOROSIS
     Dosage: 1 TABLET A DAY FOR 2 DAYS ONCE A MONTH MONTHS
     Dates: start: 20080101, end: 20080701

REACTIONS (5)
  - BACK PAIN [None]
  - ENDODONTIC PROCEDURE [None]
  - JAW DISORDER [None]
  - MUSCLE SPASMS [None]
  - PAIN IN EXTREMITY [None]
